FAERS Safety Report 6834678-X (Version None)
Quarter: 2010Q3

REPORT INFORMATION
  Report Type: 
  Country: None (occurrence: None)
  Receive Date: 20100712
  Receipt Date: 20070416
  Transmission Date: 20110219
  Serious: No
  Sender: FDA-Public Use
  Company Number: US-PFIZER INC-2007031578

PATIENT
  Sex: Female
  Weight: 90 kg

DRUGS (8)
  1. CHANTIX [Suspect]
     Indication: SMOKING CESSATION THERAPY
     Dates: start: 20070409
  2. FENTANYL [Concomitant]
  3. FOSAMAX [Concomitant]
  4. LIPITOR [Concomitant]
  5. KLONOPIN [Concomitant]
  6. ADVAIR DISKUS 100/50 [Concomitant]
  7. COMBIVENT [Concomitant]
  8. VICODIN [Concomitant]

REACTIONS (1)
  - DRUG INEFFECTIVE [None]
